FAERS Safety Report 8760702 (Version 2)
Quarter: 2013Q1

REPORT INFORMATION
  Report Type: Report from Study
  Country: CA (occurrence: CA)
  Receive Date: 20120830
  Receipt Date: 20130218
  Transmission Date: 20140127
  Serious: Yes (Other)
  Sender: FDA-Public Use
  Company Number: CA-BRISTOL-MYERS SQUIBB COMPANY-16872541

PATIENT
  Age: 56 Year
  Sex: Female

DRUGS (9)
  1. ORENCIA [Suspect]
     Dosage: NO OF INF:14,LAST INF ON 17AUG12
     Route: 042
     Dates: start: 20110910
  2. PREDNISONE [Suspect]
  3. VENTOLIN [Concomitant]
  4. CIPROFLOXACIN [Concomitant]
  5. DEXAMETHASONE [Concomitant]
  6. ATROVENT [Concomitant]
  7. SYNTHROID [Concomitant]
  8. ADVAIR [Concomitant]
  9. NAPROXEN [Concomitant]

REACTIONS (1)
  - Fracture [Unknown]
